FAERS Safety Report 19104179 (Version 2)
Quarter: 2021Q3

REPORT INFORMATION
  Report Type: Spontaneous
  Country: US (occurrence: US)
  Receive Date: 20210407
  Receipt Date: 20210727
  Transmission Date: 20211014
  Serious: Yes (Hospitalization, Other)
  Sender: FDA-Public Use
  Company Number: US-BAYER-2021-115052

PATIENT

DRUGS (1)
  1. GADAVIST [Suspect]
     Active Substance: GADOBUTROL
     Dosage: 6 ML, ONCE
     Route: 037
     Dates: start: 202103, end: 202103

REACTIONS (3)
  - Incorrect route of product administration [None]
  - Seizure [None]
  - Coma [None]

NARRATIVE: CASE EVENT DATE: 202103
